FAERS Safety Report 7505590-8 (Version None)
Quarter: 2011Q2

REPORT INFORMATION
  Report Type: 
  Country: None (occurrence: None)
  Receive Date: 20110526
  Receipt Date: 20110523
  Transmission Date: 20111010
  Serious: Yes (Other)
  Sender: FDA-Public Use
  Company Number: AU-PFIZER INC-2011111976

PATIENT
  Sex: Female

DRUGS (1)
  1. VARENICLINE TARTRATE [Suspect]
     Dosage: UNK

REACTIONS (4)
  - PSYCHOMOTOR HYPERACTIVITY [None]
  - TREMOR [None]
  - MOOD ALTERED [None]
  - MEMORY IMPAIRMENT [None]
